FAERS Safety Report 25523147 (Version 1)
Quarter: 2025Q3

REPORT INFORMATION
  Report Type: Report from Study
  Country: US (occurrence: US)
  Receive Date: 20250707
  Receipt Date: 20250707
  Transmission Date: 20251021
  Serious: Yes (Hospitalization, Other)
  Sender: TAKEDA
  Company Number: US-TAKEDA-2024TUS128004

PATIENT
  Age: 78 Year
  Sex: Female
  Weight: 77 kg

DRUGS (2)
  1. .ALPHA.1-PROTEINASE INHIBITOR HUMAN [Suspect]
     Active Substance: .ALPHA.1-PROTEINASE INHIBITOR HUMAN
     Indication: Alpha-1 antitrypsin deficiency
  2. .ALPHA.1-PROTEINASE INHIBITOR HUMAN [Suspect]
     Active Substance: .ALPHA.1-PROTEINASE INHIBITOR HUMAN
     Dosage: 60 MILLIGRAM/KILOGRAM, 1/WEEK
     Dates: start: 20240719

REACTIONS (7)
  - Fall [Recovering/Resolving]
  - Rib fracture [Recovering/Resolving]
  - Chest injury [Recovering/Resolving]
  - Respiratory tract congestion [Unknown]
  - Influenza [Unknown]
  - Musculoskeletal chest pain [Recovering/Resolving]
  - Dyspnoea [Unknown]
